FAERS Safety Report 23201147 (Version 1)
Quarter: 2023Q4

REPORT INFORMATION
  Report Type: Spontaneous
  Country: CN (occurrence: CN)
  Receive Date: 20231118
  Receipt Date: 20231118
  Transmission Date: 20240110
  Serious: Yes (Other)
  Sender: FDA-Public Use
  Company Number: CN-MACLEODS PHARMACEUTICALS US LTD-MAC2023044263

PATIENT

DRUGS (18)
  1. ARIPIPRAZOLE [Suspect]
     Active Substance: ARIPIPRAZOLE
     Indication: Schizophrenia
     Dosage: 15 MILLIGRAM, QD (DAY 35 AFTER ADMISSION)
     Route: 065
     Dates: start: 2018
  2. ARIPIPRAZOLE [Suspect]
     Active Substance: ARIPIPRAZOLE
     Dosage: 10 MILLIGRAM, QD
     Route: 065
  3. ARIPIPRAZOLE [Suspect]
     Active Substance: ARIPIPRAZOLE
     Dosage: 5 MILLIGRAM, QD
     Route: 065
  4. ARIPIPRAZOLE [Suspect]
     Active Substance: ARIPIPRAZOLE
     Dosage: 10 MILLIGRAM, QD (DAY 1 HOSPITALIZATION)
     Route: 065
     Dates: start: 2018, end: 2018
  5. ARIPIPRAZOLE [Suspect]
     Active Substance: ARIPIPRAZOLE
     Dosage: 30 MILLIGRAM, QD (DAY 15 AFTER ADMISSION)
     Route: 065
     Dates: start: 2018, end: 2018
  6. ARIPIPRAZOLE [Suspect]
     Active Substance: ARIPIPRAZOLE
     Dosage: 20 MILLIGRAM, QD (1 DAY AFTER HOSPITALIZATION)
     Route: 065
     Dates: start: 2018, end: 2018
  7. OLANZAPINE [Suspect]
     Active Substance: OLANZAPINE
     Indication: Schizophrenia
     Dosage: 15 MILLIGRAM, QD (15 DAY AFTER HOSPITALIZATION)
     Route: 065
     Dates: start: 2018, end: 2018
  8. OLANZAPINE [Suspect]
     Active Substance: OLANZAPINE
     Dosage: 20 MILLIGRAM, QD (SEQUENCE OF THERAPEUTIC SCHEDULE 5)
     Route: 065
  9. OLANZAPINE [Suspect]
     Active Substance: OLANZAPINE
     Dosage: 7.5 MILLIGRAM, QD (7 DAY AFTER HOSPITALIZATION)
     Route: 065
     Dates: start: 2018, end: 2018
  10. OLANZAPINE [Suspect]
     Active Substance: OLANZAPINE
     Dosage: 20 MILLIGRAM, QD (30 DAY AND DAY 35 AFTER HOSPITALIZATION)
     Route: 065
     Dates: start: 2018, end: 2018
  11. OLANZAPINE [Suspect]
     Active Substance: OLANZAPINE
     Dosage: 20 MILLIGRAM, QD (SEQUENCE OF THERAPEUTIC SCHEDULE 2)
     Route: 065
  12. OLANZAPINE [Suspect]
     Active Substance: OLANZAPINE
     Dosage: 10 MILLIGRAM, QD (SEQUENCE OF THERAPEUTIC SCHEDULE 3)
     Route: 065
  13. OLANZAPINE [Suspect]
     Active Substance: OLANZAPINE
     Dosage: 2.5 MILLIGRAM, QD (1 DAY AFTER HOSPITALIZATION)
     Route: 065
     Dates: start: 2018, end: 2018
  14. OLANZAPINE [Suspect]
     Active Substance: OLANZAPINE
     Dosage: 15 MILLIGRAM, QD (DAY 45 AFTER ADMISSION)
     Route: 065
     Dates: start: 2018
  15. PALIPERIDONE [Suspect]
     Active Substance: PALIPERIDONE
     Indication: Schizophrenia
     Dosage: 12 MILLIGRAM, QD (SEQUENCE OF THERAPEUTIC SCHEDULE AT 4, 5)
     Route: 048
  16. PALIPERIDONE [Suspect]
     Active Substance: PALIPERIDONE
     Dosage: 3 MILLIGRAM, QD (35 DAYS AFTER ADMISSION)
     Route: 048
     Dates: start: 2018, end: 2018
  17. PALIPERIDONE [Suspect]
     Active Substance: PALIPERIDONE
     Dosage: 12 MILLIGRAM, QD (3 MG IN THE MORNING AND 9 MG IN THE EVENING 45 DAYS AFTER ADMISSION (ANTIPSYCHOTIC
     Route: 048
     Dates: start: 2018
  18. PALIPERIDONE [Suspect]
     Active Substance: PALIPERIDONE
     Dosage: 9 MILLIGRAM, QD (SEQUENCE OF THERAPEUTIC SCHEDULE 3)
     Route: 048

REACTIONS (2)
  - Hyperprolactinaemia [Unknown]
  - Weight increased [Unknown]

NARRATIVE: CASE EVENT DATE: 20190101
